FAERS Safety Report 5838421-2 (Version None)
Quarter: 2008Q3

REPORT INFORMATION
  Report Type: 
  Country: None (occurrence: None)
  Receive Date: 20080808
  Receipt Date: 20080804
  Transmission Date: 20090109
  Serious: Yes (Other)
  Sender: FDA-Public Use
  Company Number: GB-ASTRAZENECA-2008GB01484

PATIENT
  Age: 57 Year
  Sex: Female
  Weight: 90.7 kg

DRUGS (6)
  1. OMEPRAZOLE [Suspect]
     Indication: ABDOMINAL PAIN
     Route: 065
     Dates: start: 20080131, end: 20080202
  2. COD LIVER OIL [Concomitant]
  3. FLUOXETINE [Concomitant]
     Indication: DEPRESSION
     Dosage: 20MG
     Route: 048
  4. LEVOTHYROXINE SODIUM [Concomitant]
     Indication: HYPOTHYROIDISM
     Dosage: 100MG
     Route: 048
  5. STARFLOWER OIL [Concomitant]
  6. LEVOTHYROXINE SODIUM [Concomitant]

REACTIONS (7)
  - ARTHRALGIA [None]
  - FEELING COLD [None]
  - JOINT SWELLING [None]
  - NECK PAIN [None]
  - PRURITUS [None]
  - RASH [None]
  - SKIN EXFOLIATION [None]
